FAERS Safety Report 22283085 (Version 9)
Quarter: 2023Q4

REPORT INFORMATION
  Report Type: Report from Study
  Country: US (occurrence: US)
  Receive Date: 20230504
  Receipt Date: 20231222
  Transmission Date: 20240110
  Serious: Yes (Other)
  Sender: FDA-Public Use
  Company Number: US-002147023-NVSC2023US100070

PATIENT
  Age: 71 Year
  Sex: Female

DRUGS (1)
  1. LEQVIO [Suspect]
     Active Substance: INCLISIRAN SODIUM
     Indication: Product used for unknown indication
     Dosage: UNK
     Route: 058
     Dates: start: 20230322

REACTIONS (24)
  - Cardiac failure [Unknown]
  - Multiple fractures [Unknown]
  - Mental impairment [Unknown]
  - Lower limb fracture [Unknown]
  - Fall [Unknown]
  - Weight increased [Unknown]
  - Memory impairment [Unknown]
  - Foot fracture [Unknown]
  - Illness [Unknown]
  - Rib fracture [Unknown]
  - Hand fracture [Unknown]
  - Wrist fracture [Unknown]
  - Tibia fracture [Unknown]
  - Depression [Unknown]
  - Intervertebral disc disorder [Unknown]
  - Decreased activity [Unknown]
  - Arthralgia [Unknown]
  - Emotional disorder [Unknown]
  - COVID-19 [Unknown]
  - Fatigue [Unknown]
  - Cough [Unknown]
  - Decreased appetite [Unknown]
  - Diarrhoea [Unknown]
  - Hepatic enzyme increased [Unknown]

NARRATIVE: CASE EVENT DATE: 20230626
